FAERS Safety Report 6571502-7 (Version None)
Quarter: 2010Q1

REPORT INFORMATION
  Report Type: 
  Country: None (occurrence: None)
  Receive Date: 20100205
  Receipt Date: 20100125
  Transmission Date: 20100710
  Serious: Yes (Other)
  Sender: FDA-Public Use
  Company Number: SI-SOLVAY-00310000507

PATIENT
  Age: 22580 Day
  Sex: Male

DRUGS (1)
  1. ANDROTOP [Suspect]
     Indication: HYPOGONADISM
     Dosage: DAILY DOSE:  UNKNOWN
     Route: 062

REACTIONS (2)
  - AMNESIA [None]
  - NAUSEA [None]
